FAERS Safety Report 8848988 (Version 1)
Quarter: 2012Q4

REPORT INFORMATION
  Report Type: 
  Country: CA (occurrence: CA)
  Receive Date: 20121019
  Receipt Date: 20121019
  Transmission Date: 20130627
  Serious: Yes (Hospitalization, Other)
  Sender: FDA-Public Use
  Company Number: PHMT2006CA00766

PATIENT
  Sex: Male

DRUGS (2)
  1. SANDOSTATIN [Suspect]
     Indication: HYPOPHARYNGEAL CANCER
     Route: 058
     Dates: start: 200601
  2. SANDOSTATIN LAR [Suspect]

REACTIONS (4)
  - Pneumonia [Unknown]
  - Clostridium difficile infection [Unknown]
  - Hypotension [Unknown]
  - Hyperglycaemia [Unknown]
